FAERS Safety Report 9055791 (Version 1)
Quarter: 2013Q1

REPORT INFORMATION
  Report Type: Spontaneous
  Country: PT (occurrence: PT)
  Receive Date: 20130206
  Receipt Date: 20130206
  Transmission Date: 20140127
  Serious: Yes (Hospitalization)
  Sender: FDA-Public Use
  Company Number: PT-ABBOTT-13P-130-1044596-00

PATIENT
  Age: 41 Year
  Sex: Female

DRUGS (4)
  1. VALPROATE SEMISODIUM [Suspect]
     Indication: MANIA
     Dosage: 500 MILLIGRAMS, DAILY
  2. VALPROATE SEMISODIUM [Suspect]
     Dosage: 1000 MILLIGRAMS, DAILY
  3. RISPERIDONE [Suspect]
     Indication: MANIA
     Dosage: 2 MILLIGRAMS, DAILY
  4. RISPERIDONE [Suspect]
     Dosage: 4 MILLIGRAMS, DAILY

REACTIONS (6)
  - Drug interaction [Unknown]
  - Psychomotor retardation [Unknown]
  - Hyperammonaemic encephalopathy [Unknown]
  - Ammonia increased [Unknown]
  - Dysarthria [Unknown]
  - Ataxia [Unknown]
